FAERS Safety Report 10945258 (Version 2)
Quarter: 2015Q1

REPORT INFORMATION
  Report Type: Spontaneous
  Country: AU (occurrence: AU)
  Receive Date: 20150323
  Receipt Date: 20150330
  Transmission Date: 20150721
  Serious: Yes (Other)
  Sender: FDA-Public Use
  Company Number: AU-AMGEN-AUSSP2015017785

PATIENT
  Age: 65 Year
  Sex: Female

DRUGS (15)
  1. DIAZEPAM GA [Concomitant]
     Dosage: I ONCE DAILY PRN
  2. PREDNISOLONE. [Concomitant]
     Active Substance: PREDNISOLONE
     Dosage: 5 MG QD, 25 MG, 2 DAILY FOR 3 DAYS, REDUCED BY HALF EVERY 2 DAYS
  3. ASPIRIN. [Concomitant]
     Active Substance: ASPIRIN
     Dosage: 100 MG, QOD
  4. VITAMIN B12 [Concomitant]
     Active Substance: CYANOCOBALAMIN
     Dosage: 100 MUG, BID
  5. PANADOL [Concomitant]
     Active Substance: ACETAMINOPHEN
     Dosage: 665 MG, TAB 2 TDS
  6. TEGRETOL [Concomitant]
     Active Substance: CARBAMAZEPINE
     Dosage: 1 UNIT, BID
  7. PROLIA [Suspect]
     Active Substance: DENOSUMAB
     Indication: OSTEOPOROSIS
     Dosage: 60 MG, Q6MO
     Route: 065
     Dates: start: 201307
  8. NIZATIDINE. [Concomitant]
     Active Substance: NIZATIDINE
     Dosage: 150 MG, MANE AND 300 MG, NOCTE
  9. NITROLINGUAL [Concomitant]
     Active Substance: NITROGLYCERIN
     Dosage: 400 MUG, AS NECESSARY
  10. DULOXETINE [Concomitant]
     Active Substance: DULOXETINE
     Dosage: 30 MG, QD
  11. NEXIUM [Concomitant]
     Active Substance: ESOMEPRAZOLE MAGNESIUM
     Dosage: 40 MG, ONCE IN THE MORNING
  12. OSTELIN VITAMIN D [Concomitant]
     Dosage: 25 MUG, BID
  13. EPIPEN [Concomitant]
     Active Substance: EPINEPHRINE
     Dosage: 300 MUG/ 0.3 ML, AS DIRECTED
  14. URSOFALK [Concomitant]
     Active Substance: URSODIOL
     Dosage: 250 MG, 2 BD
  15. VERAPAMIL HYDROCHLORIDE. [Concomitant]
     Active Substance: VERAPAMIL HYDROCHLORIDE
     Dosage: 180 MG, 1 IN THE MORNING

REACTIONS (12)
  - Groin pain [Not Recovered/Not Resolved]
  - Skin burning sensation [Unknown]
  - Anaphylactic reaction [Not Recovered/Not Resolved]
  - Pain [Not Recovered/Not Resolved]
  - Abdominal pain [Not Recovered/Not Resolved]
  - Arthralgia [Not Recovered/Not Resolved]
  - Pruritus [Unknown]
  - Renal pain [Not Recovered/Not Resolved]
  - Feeling abnormal [Unknown]
  - Back pain [Not Recovered/Not Resolved]
  - Walking aid user [Unknown]
  - Drug hypersensitivity [Unknown]

NARRATIVE: CASE EVENT DATE: 2013
